FAERS Safety Report 8520520-8 (Version None)
Quarter: 2012Q3

REPORT INFORMATION
  Report Type: 
  Country: None (occurrence: None)
  Receive Date: 20120713
  Receipt Date: 20120713
  Transmission Date: 20120928
  Serious: Yes (Hospitalization)
  Sender: FDA-Public Use
  Company Number: None

PATIENT
  Age: 59 Year
  Sex: Female
  Weight: 58.9 kg

DRUGS (5)
  1. ABRAXANE [Suspect]
     Indication: CHEMOTHERAPY
     Dosage: 128 MG IV, 118 MG IV
     Route: 042
     Dates: start: 20120417, end: 20120626
  2. ZOFREN 8 MG [Concomitant]
  3. CARBOPLATIN [Suspect]
     Indication: CHEMOTHERAPY
     Dosage: 720 MG
     Dates: start: 20120417, end: 20120626
  4. ATENOLOL [Concomitant]
  5. NEURONTIN [Concomitant]

REACTIONS (8)
  - NEUROPATHY PERIPHERAL [None]
  - OTITIS MEDIA [None]
  - NEUTROPENIA [None]
  - SKIN HYPERPIGMENTATION [None]
  - HYPOACUSIS [None]
  - EAR PAIN [None]
  - OTITIS EXTERNA [None]
  - DIARRHOEA [None]
